FAERS Safety Report 7052909-0 (Version None)
Quarter: 2010Q4

REPORT INFORMATION
  Report Type: 
  Country: None (occurrence: None)
  Receive Date: 20101020
  Receipt Date: 20101012
  Transmission Date: 20110411
  Serious: Yes (Hospitalization)
  Sender: FDA-Public Use
  Company Number: US-BIOGENIDEC-2010BI035536

PATIENT
  Age: 55 Year
  Sex: Female

DRUGS (3)
  1. AVONEX [Suspect]
     Indication: MULTIPLE SCLEROSIS
     Route: 030
     Dates: start: 20070128, end: 20070801
  2. AVONEX [Suspect]
     Route: 030
     Dates: start: 20080323, end: 20090904
  3. AVONEX [Suspect]
     Route: 030
     Dates: start: 20100207

REACTIONS (1)
  - CARDIAC OPERATION [None]
